FAERS Safety Report 7201723-1 (Version None)
Quarter: 2010Q4

REPORT INFORMATION
  Report Type: 
  Country: None (occurrence: None)
  Receive Date: 20101216
  Receipt Date: 20101210
  Transmission Date: 20110411
  Serious: Yes (Other)
  Sender: FDA-Public Use
  Company Number: CIP10003034

PATIENT
  Age: 83 Year
  Sex: Female

DRUGS (6)
  1. ACTONEL [Suspect]
     Dosage: 3 MG ONCE WEEKLY, ORAL
     Route: 047
     Dates: start: 20101001
  2. ADVAIR DISKUS 100/50 [Concomitant]
  3. METHIMAZOLE (METHIMAZOLE) [Concomitant]
  4. ASPIRIN [Concomitant]
  5. CALCIUM (CALCIUM) [Concomitant]
  6. VITAMINS NOS (VITAMINS NOS) [Concomitant]

REACTIONS (3)
  - ACTIVITIES OF DAILY LIVING IMPAIRED [None]
  - CONDITION AGGRAVATED [None]
  - DYSPNOEA [None]
